FAERS Safety Report 6853846-4 (Version None)
Quarter: 2010Q3

REPORT INFORMATION
  Report Type: 
  Country: None (occurrence: None)
  Receive Date: 20100717
  Receipt Date: 20071221
  Transmission Date: 20110219
  Serious: No
  Sender: FDA-Public Use
  Company Number: US-PFIZER INC-2007107984

PATIENT
  Sex: Female

DRUGS (7)
  1. CHANTIX [Suspect]
     Indication: SMOKING CESSATION THERAPY
     Dates: start: 20070101
  2. LYRICA [Suspect]
     Indication: FIBROMYALGIA
     Route: 048
     Dates: start: 20071201, end: 20071201
  3. ADIPEX [Concomitant]
  4. CORGARD [Concomitant]
  5. ATIVAN [Concomitant]
  6. ALL OTHER THERAPEUTIC PRODUCTS [Concomitant]
  7. MAGNESIUM [Concomitant]

REACTIONS (3)
  - FEELING DRUNK [None]
  - NAUSEA [None]
  - VOMITING [None]
